FAERS Safety Report 5477008-0 (Version None)
Quarter: 2007Q4

REPORT INFORMATION
  Report Type: 
  Country: None (occurrence: None)
  Receive Date: 20071003
  Receipt Date: 20071003
  Transmission Date: 20080405
  Serious: No
  Sender: FDA-Public Use
  Company Number: None

PATIENT
  Sex: Male
  Weight: 89.8122 kg

DRUGS (1)
  1. CHANTIX [Suspect]
     Indication: SMOKING CESSATION THERAPY
     Dosage: 1 TABLET  2X A DAY
     Dates: start: 20070518, end: 20070831

REACTIONS (6)
  - ANGER [None]
  - FEELING ABNORMAL [None]
  - ILL-DEFINED DISORDER [None]
  - PERSONALITY CHANGE [None]
  - PNEUMONIA [None]
  - STARING [None]
